FAERS Safety Report 6498865-5 (Version None)
Quarter: 2009Q4

REPORT INFORMATION
  Report Type: 
  Country: None (occurrence: None)
  Receive Date: 20091127
  Receipt Date: 20081114
  Transmission Date: 20100525
  Serious: No
  Sender: FDA-Public Use
  Company Number: 281658

PATIENT
  Age: 81 Year
  Sex: Male

DRUGS (3)
  1. NOVOLOG [Suspect]
     Indication: TYPE 2 DIABETES MELLITUS
     Dosage: 6 U, QD (LUNCH), SUBCUTANEOUS
     Route: 058
  2. NOVOLIN (INSULIN HUMAN) SUSPENSION FOR INJECTION [Concomitant]
  3. NOVOLIN N [Concomitant]

REACTIONS (2)
  - DIZZINESS [None]
  - HEADACHE [None]
